FAERS Safety Report 5852100-7 (Version None)
Quarter: 2008Q3

REPORT INFORMATION
  Report Type: 
  Country: None (occurrence: None)
  Receive Date: 20080819
  Receipt Date: 20080801
  Transmission Date: 20090109
  Serious: Yes (Hospitalization)
  Sender: FDA-Public Use
  Company Number: 15307

PATIENT
  Age: 62 Year
  Sex: Female

DRUGS (3)
  1. MORPHINE SULFATE [Suspect]
     Indication: ARTHRALGIA
     Dosage: 45 MG BID ORAL
     Route: 048
  2. MORPHINE SULFATE [Suspect]
     Indication: CYSTITIS INTERSTITIAL
     Dosage: 45MG BID ORAL
     Route: 048
  3. UNKNOWN MEDICATIONS FOR OSTEOPOROSIS AND OSTEOARTHRITIS [Concomitant]

REACTIONS (7)
  - BLOOD CREATINE INCREASED [None]
  - CARDIAC FAILURE [None]
  - DRUG TOXICITY [None]
  - PHARMACEUTICAL PRODUCT COMPLAINT [None]
  - PULMONARY OEDEMA [None]
  - PULMONARY THROMBOSIS [None]
  - RENAL FAILURE [None]
